FAERS Safety Report 6602754-2 (Version None)
Quarter: 2010Q1

REPORT INFORMATION
  Report Type: 
  Country: None (occurrence: None)
  Receive Date: 20100226
  Receipt Date: 20100223
  Transmission Date: 20100710
  Serious: Yes (Hospitalization, Other)
  Sender: FDA-Public Use
  Company Number: US-ASTRAZENECA-2006UW01463

PATIENT
  Age: 52 Year
  Sex: Male
  Weight: 144.7 kg

DRUGS (41)
  1. SEROQUEL [Suspect]
     Indication: SCHIZOPHRENIA
     Dosage: 25 MG TO 200 MG
     Route: 048
     Dates: start: 20000918, end: 20050101
  2. SEROQUEL [Suspect]
     Indication: BIPOLAR DISORDER
     Dosage: 25 MG TO 200 MG
     Route: 048
     Dates: start: 20000918, end: 20050101
  3. SEROQUEL [Suspect]
     Indication: BIPOLAR I DISORDER
     Dosage: 25 MG TO 200 MG
     Route: 048
     Dates: start: 20000918, end: 20050101
  4. SEROQUEL [Suspect]
     Route: 048
     Dates: start: 20001013
  5. SEROQUEL [Suspect]
     Route: 048
     Dates: start: 20001013
  6. SEROQUEL [Suspect]
     Route: 048
     Dates: start: 20001013
  7. AMBIEN [Suspect]
     Indication: INSOMNIA
     Route: 048
     Dates: start: 20040918
  8. GEODON [Concomitant]
     Dates: start: 20040501, end: 20041001
  9. GEODON [Concomitant]
     Dates: start: 20040511
  10. ZYPREXA [Concomitant]
     Indication: SCHIZOPHRENIA
     Route: 048
     Dates: start: 20000101, end: 20031006
  11. ZYPREXA [Concomitant]
     Indication: BIPOLAR DISORDER
     Route: 048
     Dates: start: 20000101, end: 20031006
  12. ZYPREXA [Concomitant]
     Indication: BIPOLAR I DISORDER
     Route: 048
     Dates: start: 20000101, end: 20031006
  13. CELEXA [Concomitant]
     Route: 048
     Dates: start: 20031006
  14. LITHIUM CARBONATE [Concomitant]
     Route: 048
     Dates: start: 20040712
  15. CLONIDINE [Concomitant]
     Dates: start: 20040211
  16. CLONIDINE [Concomitant]
     Route: 048
     Dates: start: 20040511
  17. WELLBUTRIN XL [Concomitant]
     Route: 048
     Dates: start: 20050119
  18. DEPAKOTE [Concomitant]
     Dates: start: 20000121
  19. DEPAKOTE [Concomitant]
     Route: 048
     Dates: start: 20040921
  20. ZOLOFT [Concomitant]
     Route: 048
     Dates: start: 20050820
  21. ZOLOFT [Concomitant]
     Route: 048
     Dates: start: 20060208
  22. BEXTRA [Concomitant]
     Route: 048
     Dates: start: 20040512
  23. TRAMADOL HCL [Concomitant]
     Route: 048
     Dates: start: 20040604
  24. FLUOXETINE [Concomitant]
     Route: 048
     Dates: start: 20050110
  25. CARBAMAZEPINE [Concomitant]
     Route: 048
     Dates: start: 20050823
  26. LORATADINE [Concomitant]
     Route: 048
     Dates: start: 20060218
  27. LIPITOR [Concomitant]
     Route: 048
     Dates: start: 20060422
  28. LOTREL [Concomitant]
     Dosage: 5 MG - 20 MG
     Route: 048
     Dates: start: 20060503
  29. ENABLEX [Concomitant]
     Indication: HYPERTONIC BLADDER
     Route: 048
     Dates: start: 20061204
  30. ENABLEX [Concomitant]
     Route: 048
     Dates: start: 20061216
  31. APAP W/ CODEINE [Concomitant]
     Dosage: 300-30
     Dates: start: 20040608
  32. AMARYL [Concomitant]
     Dates: start: 20040517
  33. ASPIRIN [Concomitant]
  34. MOTRIN [Concomitant]
     Indication: SLEEP DISORDER
     Dosage: 600 MG THREE TIMES A DAY AS NEEDED
     Dates: start: 20001013
  35. TRAZODONE HCL [Concomitant]
     Indication: SLEEP DISORDER
     Dates: start: 20001013
  36. NEURONTIN [Concomitant]
     Dates: start: 20050713
  37. ACTOS [Concomitant]
     Indication: DIABETES MELLITUS
     Dates: start: 20060318
  38. ALBUTEROL [Concomitant]
  39. SERZONE [Concomitant]
  40. BUSPAR [Concomitant]
     Indication: ANXIETY
     Dates: start: 20061110
  41. BUSPAR [Concomitant]
     Indication: SOCIAL PHOBIA
     Dates: start: 20061110

REACTIONS (21)
  - ABNORMAL BEHAVIOUR [None]
  - BRONCHITIS [None]
  - CARDIAC FAILURE CONGESTIVE [None]
  - CELLULITIS [None]
  - CHEST PAIN [None]
  - DIABETES MELLITUS INADEQUATE CONTROL [None]
  - DRUG WITHDRAWAL SYNDROME [None]
  - HYPOGLYCAEMIA [None]
  - INSOMNIA [None]
  - LIVER DISORDER [None]
  - MUSCULOSKELETAL PAIN [None]
  - NEUROPATHY PERIPHERAL [None]
  - OBESITY [None]
  - OVERDOSE [None]
  - SKIN LESION [None]
  - SUICIDE ATTEMPT [None]
  - TREMOR [None]
  - TYPE 2 DIABETES MELLITUS [None]
  - UPPER RESPIRATORY TRACT INFECTION [None]
  - URINARY TRACT INFECTION [None]
  - VIRAL UPPER RESPIRATORY TRACT INFECTION [None]
